FAERS Safety Report 5813848-3 (Version None)
Quarter: 2008Q3

REPORT INFORMATION
  Report Type: 
  Country: None (occurrence: None)
  Receive Date: 20080714
  Receipt Date: 20080630
  Transmission Date: 20090109
  Serious: Yes (Other)
  Sender: FDA-Public Use
  Company Number: 2008017431

PATIENT

DRUGS (1)
  1. VISINE PURE TEARS (GLYCERIN, POLYETHYLENE GLYCOL, HYDROXYPROPYLMETHYLC [Suspect]
     Dosage: OPHTHAMIC
     Route: 047

REACTIONS (6)
  - BLINDNESS UNILATERAL [None]
  - CONDITION AGGRAVATED [None]
  - EYE IRRITATION [None]
  - EYE PAIN [None]
  - EYELID OEDEMA [None]
  - VISUAL IMPAIRMENT [None]
